FAERS Safety Report 18618784 (Version 1)
Quarter: 2020Q4

REPORT INFORMATION
  Report Type: Report from Study
  Country: DE (occurrence: DE)
  Receive Date: 20201215
  Receipt Date: 20201215
  Transmission Date: 20210114
  Serious: Yes (Hospitalization)
  Sender: FDA-Public Use
  Company Number: DE-SHIRE-DE201812255

PATIENT

DRUGS (7)
  1. TEDUGLUTIDE [Suspect]
     Active Substance: TEDUGLUTIDE
     Indication: SHORT-BOWEL SYNDROME
     Dosage: 0.05 MG/KG (TOTAL DOSE 3.6 MG), 7 DOSES PER WEEK
     Route: 065
     Dates: start: 20161108
  2. VANCOMYCIN [Concomitant]
     Active Substance: VANCOMYCIN
     Indication: INTERVERTEBRAL DISCITIS
  3. OPIUM TINCTURE [Concomitant]
     Active Substance: MORPHINE
     Indication: SHORT-BOWEL SYNDROME
  4. TEDUGLUTIDE [Suspect]
     Active Substance: TEDUGLUTIDE
     Indication: SHORT-BOWEL SYNDROME
     Dosage: 0.05 MG/KG (TOTAL DOSE 3.6 MG), 7 DOSES PER WEEK
     Route: 065
     Dates: start: 20161108
  5. TEDUGLUTIDE [Suspect]
     Active Substance: TEDUGLUTIDE
     Indication: SHORT-BOWEL SYNDROME
     Dosage: 0.05 MG/KG (TOTAL DOSE 3.6 MG), 7 DOSES PER WEEK
     Route: 065
     Dates: start: 20161108
  6. TEDUGLUTIDE [Suspect]
     Active Substance: TEDUGLUTIDE
     Indication: SHORT-BOWEL SYNDROME
     Dosage: 0.05 MG/KG (TOTAL DOSE 3.6 MG), 7 DOSES PER WEEK
     Route: 065
     Dates: start: 20161108
  7. CLEXANE [Concomitant]
     Active Substance: ENOXAPARIN SODIUM
     Indication: THROMBOSIS PROPHYLAXIS

REACTIONS (2)
  - Device related infection [Recovered/Resolved]
  - Gallbladder mucocoele [Not Recovered/Not Resolved]

NARRATIVE: CASE EVENT DATE: 20170515
